FAERS Safety Report 5156193-4 (Version None)
Quarter: 2006Q4

REPORT INFORMATION
  Report Type: 
  Country: None (occurrence: None)
  Receive Date: 20061122
  Receipt Date: 20061115
  Transmission Date: 20070319
  Serious: Yes (Hospitalization)
  Sender: FDA-Public Use
  Company Number: 2006PK02367

PATIENT
  Age: 82 Year
  Sex: Female

DRUGS (7)
  1. SEROQUEL [Suspect]
     Route: 048
     Dates: start: 20050421, end: 20050422
  2. DOMINAL [Suspect]
     Route: 048
     Dates: start: 20050421, end: 20050422
  3. HALDOL [Suspect]
     Route: 048
     Dates: start: 20050413, end: 20050420
  4. HALDOL [Suspect]
     Route: 048
     Dates: start: 20050421, end: 20050424
  5. ADUMBRAN [Concomitant]
     Route: 048
     Dates: start: 19750101
  6. MODURETIC 5-50 [Concomitant]
     Dosage: 0.5 TO 1 TABL DAILY
     Route: 048
     Dates: start: 20050422, end: 20050429
  7. TAVOR [Concomitant]
     Dosage: 0.25. TO 0.5 MG DAILY
     Route: 048
     Dates: start: 20050418, end: 20050503

REACTIONS (1)
  - PLEUROTHOTONUS [None]
